FAERS Safety Report 10237090 (Version 8)
Quarter: 2019Q1

REPORT INFORMATION
  Report Type: Report from Study
  Country: US (occurrence: US)
  Receive Date: 20140613
  Receipt Date: 20190204
  Transmission Date: 20190417
  Serious: Yes (Death, Hospitalization)
  Sender: FDA-Public Use
  Company Number: US-ACTELION-A-NJ2014-099973

PATIENT
  Age: 73 Year
  Sex: Female

DRUGS (1)
  1. TRACLEER [Suspect]
     Active Substance: BOSENTAN
     Indication: PULMONARY ARTERIAL HYPERTENSION
     Dosage: UNK
     Route: 048

REACTIONS (6)
  - Pneumonia [Unknown]
  - Condition aggravated [Unknown]
  - Death [Fatal]
  - Mechanical ventilation [Unknown]
  - Influenza [Unknown]
  - Respiratory failure [Unknown]

NARRATIVE: CASE EVENT DATE: 2014
